FAERS Safety Report 5599986-1 (Version None)
Quarter: 2007Q4

REPORT INFORMATION
  Report Type: 
  Country: None (occurrence: None)
  Receive Date: 20071226
  Receipt Date: 20070612
  Transmission Date: 20080405
  Serious: Yes (Hospitalization)
  Sender: FDA-Public Use
  Company Number: 242324

PATIENT
  Age: 52 Year
  Sex: Male
  Weight: 97 kg

DRUGS (2)
  1. RAPTIVA [Suspect]
     Indication: PSORIASIS
     Dosage: 1, 1/WEEK, SUBCUTANEOUS
     Route: 058
     Dates: start: 20040501, end: 20070514
  2. SYNTHROID [Concomitant]

REACTIONS (1)
  - METASTATIC MALIGNANT MELANOMA [None]
